FAERS Safety Report 4746439-6 (Version None)
Quarter: 2005Q3

REPORT INFORMATION
  Report Type: 
  Country: None (occurrence: None)
  Receive Date: 20050815
  Receipt Date: 20050725
  Transmission Date: 20060218
  Serious: Yes (Other)
  Sender: FDA-Public Use
  Company Number: CAR_0032_2005

PATIENT
  Age: 34 Year
  Sex: Male

DRUGS (5)
  1. DICLOFENAC [Suspect]
     Indication: ARTHRITIS
     Dosage: 75 MG BID PO
     Route: 048
     Dates: start: 20050622, end: 20050626
  2. DICLOFENAC [Suspect]
     Indication: INFLAMMATION
     Dosage: 75 MG BID PO
     Route: 048
     Dates: start: 20050622, end: 20050626
  3. IBUPROFEN [Concomitant]
  4. LIPITOR [Concomitant]
  5. ZOLOFT [Concomitant]

REACTIONS (2)
  - HAEMATEMESIS [None]
  - INFECTION [None]
